FAERS Safety Report 17813298 (Version 1)
Quarter: 2020Q2

REPORT INFORMATION
  Report Type: Spontaneous
  Country: AR (occurrence: AR)
  Receive Date: 20200521
  Receipt Date: 20200521
  Transmission Date: 20200714
  Serious: Yes (Hospitalization)
  Sender: FDA-Public Use
  Company Number: AR-PFIZER INC-2020201089

PATIENT
  Age: 66 Year
  Sex: Female

DRUGS (2)
  1. SUTENT [Suspect]
     Active Substance: SUNITINIB MALATE
     Indication: GASTROINTESTINAL STROMAL TUMOUR
     Dosage: 50 MG, CYCLIC (SCHEME 2X1)
     Dates: start: 20191216
  2. SUTENT [Suspect]
     Active Substance: SUNITINIB MALATE
     Dosage: 50 MG, CYCLIC (SCHEME 1X1)
     Dates: start: 20191224

REACTIONS (5)
  - Oral pain [Unknown]
  - Nasal injury [Unknown]
  - Tooth injury [Unknown]
  - Decreased immune responsiveness [Unknown]
  - Fall [Unknown]

NARRATIVE: CASE EVENT DATE: 20191224
